FAERS Safety Report 19488298 (Version 1)
Quarter: 2021Q3

REPORT INFORMATION
  Report Type: Spontaneous
  Country: CN (occurrence: CN)
  Receive Date: 20210702
  Receipt Date: 20210702
  Transmission Date: 20211014
  Serious: Yes (Hospitalization, Other)
  Sender: FDA-Public Use
  Company Number: CN-009507513-2106CHN008065

PATIENT
  Age: 82 Year
  Sex: Male
  Weight: 53 kg

DRUGS (1)
  1. KEYTRUDA [Suspect]
     Active Substance: PEMBROLIZUMAB
     Indication: OESOPHAGEAL CARCINOMA
     Dosage: 200 MG, EVERY 21 DAYS (Q3W)
     Route: 041
     Dates: start: 20210315, end: 20210603

REACTIONS (5)
  - Cholangiolitis [Recovered/Resolved with Sequelae]
  - Malignant neoplasm progression [Unknown]
  - Conjunctivitis [Recovered/Resolved with Sequelae]
  - Drug-induced liver injury [Recovered/Resolved with Sequelae]
  - Renal failure [Unknown]

NARRATIVE: CASE EVENT DATE: 2021
